FAERS Safety Report 5916059-6 (Version None)
Quarter: 2008Q4

REPORT INFORMATION
  Report Type: 
  Country: None (occurrence: None)
  Receive Date: 20081013
  Receipt Date: 20081002
  Transmission Date: 20090506
  Serious: Yes (Hospitalization)
  Sender: FDA-Public Use
  Company Number: JP-JNJFOC-20081001317

PATIENT
  Age: 53 Year
  Sex: Male

DRUGS (4)
  1. RISPERDAL [Suspect]
     Route: 048
  2. RISPERDAL [Suspect]
     Route: 048
  3. RISPERDAL [Suspect]
     Indication: SCHIZOPHRENIA
     Route: 048
  4. BIPERIDEN HYDROCHLORIDE TAB [Concomitant]
     Route: 065

REACTIONS (1)
  - HYPOGLYCAEMIA [None]
